FAERS Safety Report 23996681 (Version 1)
Quarter: 2024Q2

REPORT INFORMATION
  Report Type: Spontaneous
  Country: CA (occurrence: CA)
  Receive Date: 20240620
  Receipt Date: 20240620
  Transmission Date: 20240715
  Serious: Yes (Other)
  Sender: FDA-Public Use
  Company Number: CA-SANDOZ-SDZ2024CA059336

PATIENT

DRUGS (4)
  1. METFORMIN [Suspect]
     Active Substance: METFORMIN HYDROCHLORIDE
     Indication: Product used for unknown indication
     Dosage: UNKNOWN
     Route: 065
  2. METFORMIN [Suspect]
     Active Substance: METFORMIN HYDROCHLORIDE
     Dosage: UNKNOWN
     Route: 065
  3. SAXENDA [Suspect]
     Active Substance: LIRAGLUTIDE
     Indication: Product used for unknown indication
     Dosage: 3ML MULTIDOSE PREFILLED PEN. EACH PEN DELIVERS DOSES OF 0.6MG, 1.2MG, 1.8MG, 2.4MG AND 3MG
     Route: 065
  4. SAXENDA [Suspect]
     Active Substance: LIRAGLUTIDE
     Dosage: 3ML MULTIDOSE PREFILLED PEN. EACH PEN DELIVERS DOSES OF 0.6MG, 1.2MG, 1.8MG, 2.4MG AND 3MG
     Route: 065

REACTIONS (1)
  - Muscle rupture [Unknown]
